FAERS Safety Report 15447520 (Version 1)
Quarter: 2018Q3

REPORT INFORMATION
  Report Type: Spontaneous
  Country: US (occurrence: US)
  Receive Date: 20180928
  Receipt Date: 20180928
  Transmission Date: 20181010
  Serious: No
  Sender: FDA-Public Use
  Company Number: US-AMGEN-USASP2018105826

PATIENT
  Age: 84 Year
  Sex: Male

DRUGS (12)
  1. CALCIUM CITRATE WITH VITAMIN D [Concomitant]
     Active Substance: CALCIUM CITRATE\VITAMIN D
  2. PROLIA [Suspect]
     Active Substance: DENOSUMAB
     Indication: OSTEOPOROSIS
     Dosage: 60 MG, Q6MO
     Route: 065
     Dates: start: 20180702
  3. OMEPRAZOLE. [Concomitant]
     Active Substance: OMEPRAZOLE
  4. TRAMADOL. [Suspect]
     Active Substance: TRAMADOL
     Indication: PRODUCT USED FOR UNKNOWN INDICATION
     Route: 065
  5. ECOTRIN [Concomitant]
     Active Substance: ASPIRIN
     Dosage: 81 MG, UNK
  6. SYMBICORT [Concomitant]
     Active Substance: BUDESONIDE\FORMOTEROL FUMARATE DIHYDRATE
     Dosage: 2 DF (2 PUFFS), BID
  7. JUBLIA [Concomitant]
     Active Substance: EFINACONAZOLE
     Indication: NAIL INFECTION
  8. COLACE [Concomitant]
     Active Substance: DOCUSATE SODIUM
  9. LEVOTHYROXINE. [Concomitant]
     Active Substance: LEVOTHYROXINE
  10. MODAFINIL. [Concomitant]
     Active Substance: MODAFINIL
  11. SIMVASTATIN. [Concomitant]
     Active Substance: SIMVASTATIN
  12. FERROUS GLUCONATE [Concomitant]
     Active Substance: FERROUS GLUCONATE

REACTIONS (1)
  - Dysphonia [Unknown]

NARRATIVE: CASE EVENT DATE: 2018
